FAERS Safety Report 12057627 (Version 2)
Quarter: 2016Q2

REPORT INFORMATION
  Report Type: Spontaneous
  Country: US (occurrence: US)
  Receive Date: 20160210
  Receipt Date: 20160408
  Transmission Date: 20160815
  Serious: Yes (Hospitalization)
  Sender: FDA-Public Use
  Company Number: US-APOTEX-2016AP005886

PATIENT
  Sex: Male

DRUGS (7)
  1. PANTOPRAZOLE SODIUM DELAYED-RELEASE TABLETS USP [Suspect]
     Active Substance: PANTOPRAZOLE SODIUM
     Indication: PROPHYLAXIS AGAINST GASTROINTESTINAL ULCER
     Dosage: ONE TWICE DAILY AT AM AND PM
     Route: 065
  2. PRAVASTATIN [Suspect]
     Active Substance: PRAVASTATIN\PRAVASTATIN SODIUM
     Indication: BLOOD CHOLESTEROL ABNORMAL
     Dosage: 2 ONCE DAILY AT PM
     Route: 065
  3. FUROSEMIDE. [Suspect]
     Active Substance: FUROSEMIDE
     Indication: OEDEMA
     Dosage: UNK, QD
     Route: 065
  4. FOLIC ACID. [Suspect]
     Active Substance: FOLIC ACID
     Indication: SUPPLEMENTATION THERAPY
     Dosage: 1 TWICE DAILY AT AM AND PM
     Route: 065
  5. LAMIVUDINE TABLETS (HBV) [Suspect]
     Active Substance: LAMIVUDINE
     Indication: ANTIVIRAL PROPHYLAXIS
     Dosage: 1/2 ONCE DAILY
     Route: 065
  6. TRIAMTEREN [Suspect]
     Active Substance: TRIAMTERENE
     Indication: BLOOD PRESSURE MANAGEMENT
     Dosage: 1 ONCE DAILY AT AM
     Route: 065
  7. POTASSIUM CHLORIDE. [Suspect]
     Active Substance: POTASSIUM CHLORIDE
     Indication: OEDEMA
     Dosage: UNK, QD
     Route: 065

REACTIONS (2)
  - Fall [Recovered/Resolved]
  - Clavicle fracture [Recovered/Resolved]
